FAERS Safety Report 14679941 (Version 2)
Quarter: 2018Q1

REPORT INFORMATION
  Report Type: Spontaneous
  Country: US (occurrence: US)
  Receive Date: 20180326
  Receipt Date: 20180330
  Transmission Date: 20180509
  Serious: Yes (Other)
  Sender: FDA-Public Use
  Company Number: US-SAOL THERAPEUTICS-2018SAO00395

PATIENT
  Age: 54 Year
  Sex: Male

DRUGS (3)
  1. LIORESAL [Suspect]
     Active Substance: BACLOFEN
     Dosage: 180 ?G, \DAY
     Route: 037
     Dates: start: 20180308, end: 20180317
  2. LIORESAL [Suspect]
     Active Substance: BACLOFEN
     Dosage: 130 ?G, \DAY
     Route: 037
     Dates: end: 20180308
  3. LIORESAL [Suspect]
     Active Substance: BACLOFEN
     Dosage: 12.5 ?G, \DAY MINIMUM RATE
     Route: 037
     Dates: start: 20180317

REACTIONS (1)
  - Respiratory arrest [Unknown]

NARRATIVE: CASE EVENT DATE: 20180317
